FAERS Safety Report 12764487 (Version 1)
Quarter: 2016Q3

REPORT INFORMATION
  Report Type: Spontaneous
  Country: ZA (occurrence: ZA)
  Receive Date: 20160920
  Receipt Date: 20160920
  Transmission Date: 20161109
  Serious: Yes (Other)
  Sender: FDA-Public Use
  Company Number: ZA-009507513-1609ZAF007475

PATIENT
  Sex: Female

DRUGS (1)
  1. IMPLANON [Suspect]
     Active Substance: ETONOGESTREL
     Dosage: UNK
     Route: 059
     Dates: start: 201505, end: 20160823

REACTIONS (7)
  - Weight increased [Recovering/Resolving]
  - Amenorrhoea [Unknown]
  - Anxiety disorder [Recovered/Resolved]
  - Mood swings [Recovered/Resolved]
  - Stress ulcer [Not Recovered/Not Resolved]
  - Stress [Unknown]
  - Aggression [Recovering/Resolving]
